FAERS Safety Report 9402255 (Version 1)
Quarter: 2013Q3

REPORT INFORMATION
  Report Type: Spontaneous
  Country: US (occurrence: US)
  Receive Date: 20130716
  Receipt Date: 20130716
  Transmission Date: 20140515
  Serious: No
  Sender: FDA-Public Use
  Company Number: US-GLAXOSMITHKLINE-A1014067A

PATIENT
  Sex: 0

DRUGS (1)
  1. NIQUITIN MINI LOZENGES [Suspect]
     Route: 065

REACTIONS (3)
  - Nausea [Unknown]
  - Abdominal discomfort [Unknown]
  - Accidental exposure to product [Unknown]
